FAERS Safety Report 13478138 (Version 1)
Quarter: 2017Q2

REPORT INFORMATION
  Report Type: Report from Study
  Country: NL (occurrence: NL)
  Receive Date: 20170425
  Receipt Date: 20170425
  Transmission Date: 20170830
  Serious: Yes (Hospitalization, Other)
  Sender: FDA-Public Use
  Company Number: NL-AMGEN-NLDSL2017020042

PATIENT
  Age: 67 Year
  Sex: Female

DRUGS (1)
  1. ARANESP [Suspect]
     Active Substance: DARBEPOETIN ALFA
     Indication: ANAEMIA OF MALIGNANT DISEASE
     Dosage: 500 MUG (IN 1 ML, AS 500 MCG/ML), Q3WK
     Route: 058

REACTIONS (2)
  - Metastasis [Unknown]
  - Terminal state [Unknown]

NARRATIVE: CASE EVENT DATE: 20170201
